FAERS Safety Report 24887791 (Version 1)
Quarter: 2025Q1

REPORT INFORMATION
  Report Type: Spontaneous
  Country: US (occurrence: US)
  Receive Date: 20250127
  Receipt Date: 20250127
  Transmission Date: 20250409
  Serious: Yes (Death)
  Sender: TEVA
  Company Number: US-TEVA-VS-3287419

PATIENT
  Age: 41 Year
  Sex: Male
  Weight: 110 kg

DRUGS (1)
  1. CINQAIR [Suspect]
     Active Substance: RESLIZUMAB
     Indication: Asthma
     Route: 042
     Dates: start: 20200815

REACTIONS (2)
  - Death [Fatal]
  - Off label use [Unknown]

NARRATIVE: CASE EVENT DATE: 20200815
